FAERS Safety Report 9580551 (Version 1)
Quarter: 2013Q3

REPORT INFORMATION
  Report Type: Spontaneous
  Country: US (occurrence: None)
  Receive Date: 20130916
  Receipt Date: 20130916
  Transmission Date: 20140515
  Serious: Yes (Other)
  Sender: FDA-Public Use
  Company Number: JPI-P-023115

PATIENT
  Age: 42 Year
  Sex: Female
  Weight: 116.12 kg

DRUGS (3)
  1. XYREM [Suspect]
     Indication: NARCOLEPSY
     Route: 048
     Dates: start: 20120710
  2. ARMODAFINIL [Concomitant]
  3. VENLAFAXINE HYDROCHLORIDE [Concomitant]

REACTIONS (6)
  - Hypertension [None]
  - Malaise [None]
  - Hypotension [None]
  - Dizziness [None]
  - Vertigo [None]
  - Drug administration error [None]
